FAERS Safety Report 10690853 (Version 2)
Quarter: 2015Q1

REPORT INFORMATION
  Report Type: Spontaneous
  Country: JP (occurrence: JP)
  Receive Date: 20150105
  Receipt Date: 20150113
  Transmission Date: 20150720
  Serious: Yes (Other)
  Sender: FDA-Public Use
  Company Number: JP-JNJFOC-20141219590

PATIENT
  Age: 3 Year
  Sex: Female

DRUGS (14)
  1. TAKEPRON [Concomitant]
     Active Substance: LANSOPRAZOLE
     Route: 048
     Dates: start: 20140725
  2. L-CARTIN [Concomitant]
     Active Substance: LEVOCARNITINE HYDROCHLORIDE
     Route: 048
     Dates: start: 20141006
  3. PROGRAF [Concomitant]
     Active Substance: TACROLIMUS\TACROLIMUS ANHYDROUS
     Route: 048
  4. FERROMIA [Concomitant]
     Active Substance: FERROUS CITRATE
     Route: 048
     Dates: start: 20141006
  5. REMICADE [Suspect]
     Active Substance: INFLIXIMAB
     Indication: CROHN^S DISEASE
     Dosage: 6TH DOSE
     Route: 042
     Dates: start: 20141210
  6. BIO-THREE [Concomitant]
     Active Substance: HERBALS
     Route: 048
     Dates: start: 20140609
  7. REMICADE [Suspect]
     Active Substance: INFLIXIMAB
     Indication: CROHN^S DISEASE
     Dosage: 5TH DOSE
     Route: 042
     Dates: start: 20141015, end: 20141015
  8. IPD [Concomitant]
     Active Substance: SUPLATAST TOSILATE
     Route: 048
     Dates: start: 20140924
  9. PREDONINE [Concomitant]
     Active Substance: PREDNISOLONE\PREDNISOLONE ACETATE\PREDNISOLONE SODIUM SUCCINATE
     Route: 042
     Dates: start: 20141117
  10. ISOTONIC SODIUM CHLORIDE SOLUTION [Concomitant]
     Active Substance: SODIUM CHLORIDE
     Route: 041
     Dates: start: 20141210
  11. LEUKERIN [Concomitant]
     Active Substance: MERCAPTOPURINE
     Route: 048
     Dates: start: 20140404
  12. REMICADE [Suspect]
     Active Substance: INFLIXIMAB
     Indication: CROHN^S DISEASE
     Route: 042
     Dates: start: 20140519, end: 201408
  13. ALFAROL [Concomitant]
     Active Substance: ALFACALCIDOL
     Dosage: 0.2 MCG
     Route: 048
     Dates: start: 20140506
  14. BIOFERMIN [Concomitant]
     Active Substance: BACILLUS SUBTILIS\LACTOBACILLUS ACIDOPHILUS\STREPTOCOCCUS FAECAIS
     Route: 048
     Dates: start: 20140411

REACTIONS (5)
  - Product use issue [Unknown]
  - Vomiting [Recovered/Resolved]
  - Infusion related reaction [Recovered/Resolved]
  - Blood pressure decreased [Recovered/Resolved]
  - Oxygen saturation decreased [Recovered/Resolved]

NARRATIVE: CASE EVENT DATE: 20140519
